FAERS Safety Report 6585196-8 (Version None)
Quarter: 2010Q1

REPORT INFORMATION
  Report Type: 
  Country: None (occurrence: None)
  Receive Date: 20100217
  Receipt Date: 20100215
  Transmission Date: 20100710
  Serious: Yes (Death)
  Sender: FDA-Public Use
  Company Number: DE-SANOFI-AVENTIS-2010SA008625

PATIENT
  Age: 75 Year
  Sex: Male

DRUGS (7)
  1. DOCETAXEL [Suspect]
     Indication: GASTRIC CANCER
     Route: 041
     Dates: start: 20090929, end: 20090929
  2. DOCETAXEL [Suspect]
     Route: 041
     Dates: start: 20100126, end: 20100126
  3. 5-FU [Concomitant]
     Indication: GASTRIC CANCER
     Route: 042
     Dates: start: 20090929
  4. 5-FU [Concomitant]
     Dosage: ABSOLUTE DOSE: 5150 MG
     Route: 042
     Dates: end: 20100126
  5. FOLINIC ACID [Concomitant]
     Route: 042
     Dates: start: 20090929
  6. FOLINIC ACID [Concomitant]
     Dosage: ABSOLUTE DOSE: 400 MG
     Route: 042
     Dates: end: 20100126
  7. BISOPROLOL [Concomitant]
     Indication: DRUG USE FOR UNKNOWN INDICATION

REACTIONS (1)
  - DEATH [None]
